FAERS Safety Report 9111053 (Version 1)
Quarter: 2013Q1

REPORT INFORMATION
  Report Type: Spontaneous
  Country: US (occurrence: US)
  Receive Date: 20130219
  Receipt Date: 20130219
  Transmission Date: 20140127
  Serious: No
  Sender: FDA-Public Use
  Company Number: US-BRISTOL-MYERS SQUIBB COMPANY-17214651

PATIENT
  Age: 51 Year
  Sex: Female
  Weight: 59.86 kg

DRUGS (5)
  1. ORENCIA [Suspect]
     Indication: RHEUMATOID ARTHRITIS
     Route: 058
     Dates: start: 20121201
  2. FOLIC ACID [Concomitant]
  3. NABUMETONE [Concomitant]
  4. CALCIUM [Concomitant]
  5. TYLENOL + CODEINE [Concomitant]

REACTIONS (2)
  - Diarrhoea [Recovered/Resolved]
  - Dry mouth [Unknown]
